FAERS Safety Report 8515639-1 (Version None)
Quarter: 2012Q3

REPORT INFORMATION
  Report Type: 
  Country: None (occurrence: None)
  Receive Date: 20120717
  Receipt Date: 20120712
  Transmission Date: 20120928
  Serious: Yes (Hospitalization, Other)
  Sender: FDA-Public Use
  Company Number: PHHY2010CA00977

PATIENT
  Sex: Female

DRUGS (1)
  1. SANDOSTATIN LAR [Suspect]
     Indication: CARCINOID TUMOUR
     Dosage: 30 MG, EVERY 4 WEEKS
     Route: 030
     Dates: start: 20060404

REACTIONS (5)
  - RENAL IMPAIRMENT [None]
  - NASOPHARYNGITIS [None]
  - CHEST PAIN [None]
  - ABDOMINAL PAIN [None]
  - DIARRHOEA [None]
